FAERS Safety Report 10868934 (Version 2)
Quarter: 2015Q2

REPORT INFORMATION
  Report Type: Report from Study
  Country: US (occurrence: US)
  Receive Date: 20150225
  Receipt Date: 20150415
  Transmission Date: 20150821
  Serious: Yes (Hospitalization, Other)
  Sender: FDA-Public Use
  Company Number: US-EISAI MEDICAL RESEARCH-EC-2014-001991

PATIENT
  Age: 58 Year
  Sex: Male
  Weight: 99.9 kg

DRUGS (14)
  1. METOPROLOL [Concomitant]
     Active Substance: METOPROLOL
  2. LENVATINIB [Suspect]
     Active Substance: LENVATINIB
     Route: 048
     Dates: start: 20121002, end: 20130218
  3. LENVATINIB [Suspect]
     Active Substance: LENVATINIB
     Dosage: COMMERCIAL LENVIMA 24 MG/DAY
     Route: 048
     Dates: start: 20150323
  4. ALLOPURINOL. [Concomitant]
     Active Substance: ALLOPURINOL
  5. LENVATINIB [Suspect]
     Active Substance: LENVATINIB
     Route: 048
     Dates: start: 20120807, end: 20120925
  6. AMLODIPINE [Concomitant]
     Active Substance: AMLODIPINE BESYLATE
  7. LENVATINIB [Suspect]
     Active Substance: LENVATINIB
     Indication: THYROID CANCER
     Route: 048
     Dates: start: 20120710, end: 20120727
  8. LEVOTHYROXINE [Concomitant]
     Active Substance: LEVOTHYROXINE
  9. LANTUS [Concomitant]
     Active Substance: INSULIN GLARGINE
  10. RAMIPRIL. [Concomitant]
     Active Substance: RAMIPRIL
  11. LENVATINIB [Suspect]
     Active Substance: LENVATINIB
     Route: 048
     Dates: start: 20130228, end: 20140222
  12. LENVATINIB [Suspect]
     Active Substance: LENVATINIB
     Route: 048
     Dates: start: 20141129, end: 20150217
  13. LENVATINIB [Suspect]
     Active Substance: LENVATINIB
     Route: 048
     Dates: start: 20140305, end: 20141125
  14. FENOBRIATE [Concomitant]

REACTIONS (5)
  - Hyperkalaemia [Recovered/Resolved]
  - Facial paresis [Recovered/Resolved with Sequelae]
  - Haematuria [Unknown]
  - Cancer pain [Recovering/Resolving]
  - Proteinuria [Unknown]

NARRATIVE: CASE EVENT DATE: 20141101
